FAERS Safety Report 20142599 (Version 1)
Quarter: 2021Q4

REPORT INFORMATION
  Report Type: Spontaneous
  Country: US (occurrence: None)
  Receive Date: 20211202
  Receipt Date: 20211202
  Transmission Date: 20220304
  Serious: No
  Sender: FDA-Public Use
  Company Number: US-ROCHE-2811697

PATIENT
  Age: 72 Year
  Sex: Male
  Weight: 81.65 kg

DRUGS (2)
  1. VALIUM [Suspect]
     Active Substance: DIAZEPAM
     Indication: Depression
     Dosage: 6 TABLETS A DAY
     Route: 048
  2. NARDIL [Suspect]
     Active Substance: PHENELZINE SULFATE
     Indication: Depression
     Route: 048

REACTIONS (2)
  - Anxiety [Not Recovered/Not Resolved]
  - Headache [Not Recovered/Not Resolved]

NARRATIVE: CASE EVENT DATE: 20210409
